FAERS Safety Report 6354284-3 (Version None)
Quarter: 2009Q3

REPORT INFORMATION
  Report Type: 
  Country: None (occurrence: None)
  Receive Date: 20090914
  Receipt Date: 20090910
  Transmission Date: 20100115
  Serious: Yes (Hospitalization, Other)
  Sender: FDA-Public Use
  Company Number: PHHO2008FR09725

PATIENT
  Sex: Male
  Weight: 37 kg

DRUGS (10)
  1. ZOLEDRONATE T29581+SOLINJ+BM [Suspect]
     Indication: BONE SARCOMA
     Dosage: 4 MG, UNK
     Route: 042
     Dates: start: 20080126
  2. ZOLEDRONATE T29581+SOLINJ+BM [Suspect]
     Dosage: 1.2 MG, UNK
     Route: 042
     Dates: start: 20080222
  3. METHOTREXATE SODIUM [Suspect]
     Indication: BONE SARCOMA
     Dosage: 14 G, UNK
     Route: 042
     Dates: start: 20080123
  4. VP-16 [Concomitant]
     Indication: BONE SARCOMA
     Dosage: 90 MG, UNK
     Route: 042
     Dates: start: 20080219
  5. ISOPHOSPHAMIDE [Concomitant]
     Indication: BONE SARCOMA
     Dosage: 3.5 G, UNK
     Route: 042
     Dates: start: 20080217
  6. CALCIUM [Concomitant]
     Dosage: UNK
     Route: 048
     Dates: start: 20080228
  7. PHOSPHORUS [Concomitant]
     Dosage: UNK
     Route: 048
     Dates: start: 20080201
  8. UVESTEROL [Concomitant]
     Dosage: UNK
     Route: 048
     Dates: start: 20080215
  9. VITAMIN D [Concomitant]
     Route: 048
  10. BACTRIM [Concomitant]
     Dosage: UNK
     Route: 048
     Dates: start: 20080215

REACTIONS (15)
  - CEREBRAL DISORDER [None]
  - CONVULSION [None]
  - CRYING [None]
  - CYST [None]
  - CYST REMOVAL [None]
  - DEPRESSED LEVEL OF CONSCIOUSNESS [None]
  - DISTURBANCE IN ATTENTION [None]
  - FATIGUE [None]
  - HEADACHE [None]
  - HYPOCALCAEMIA [None]
  - MEMORY IMPAIRMENT [None]
  - NEUROTOXICITY [None]
  - SOMNOLENCE [None]
  - SURGERY [None]
  - TOXIC ENCEPHALOPATHY [None]
